FAERS Safety Report 4276434-5 (Version None)
Quarter: 2004Q1

REPORT INFORMATION
  Report Type: 
  Country: None (occurrence: None)
  Receive Date: 20040116
  Receipt Date: 20040115
  Transmission Date: 20041129
  Serious: Yes (Hospitalization)
  Sender: FDA-Public Use
  Company Number: 400525410

PATIENT
  Age: 70 Year
  Sex: Male
  Weight: 35.8342 kg

DRUGS (1)
  1. AK-FLUOR, 10%, AKORN [Suspect]
     Indication: ANGIOGRAM
     Dosage: 500 MG, INTRAVENOUS
     Route: 042
     Dates: start: 20031216

REACTIONS (3)
  - ERYTHEMA [None]
  - FEELING HOT [None]
  - RASH MACULO-PAPULAR [None]
